FAERS Safety Report 12486952 (Version 1)
Quarter: 2016Q2

REPORT INFORMATION
  Report Type: Spontaneous
  Country: US (occurrence: None)
  Receive Date: 20160621
  Receipt Date: 20160621
  Transmission Date: 20160815
  Serious: No
  Sender: FDA-Public Use
  Company Number: None

PATIENT
  Age: 59 Year
  Sex: Male
  Weight: 76.2 kg

DRUGS (2)
  1. VANCOMYCIN 1250 1250 ML [Suspect]
     Active Substance: VANCOMYCIN
     Indication: PAIN
     Route: 042
  2. OXYCODONE 30MG [Suspect]
     Active Substance: OXYCODONE

REACTIONS (1)
  - Drug effect decreased [None]

NARRATIVE: CASE EVENT DATE: 20160609
